FAERS Safety Report 7349027-0 (Version None)
Quarter: 2011Q1

REPORT INFORMATION
  Report Type: 
  Country: None (occurrence: None)
  Receive Date: 20110314
  Receipt Date: 20110302
  Transmission Date: 20110831
  Serious: Yes (Death, Other)
  Sender: FDA-Public Use
  Company Number: FR-CELGENEUS-056-20785-10123319

PATIENT

DRUGS (1)
  1. THALIDOMIDE [Suspect]
     Indication: LICHEN MYXOEDEMATOSUS
     Route: 048

REACTIONS (2)
  - ENCEPHALOPATHY [None]
  - MULTIPLE MYELOMA [None]
